FAERS Safety Report 21490866 (Version 1)
Quarter: 2022Q4

REPORT INFORMATION
  Report Type: Spontaneous
  Country: DE (occurrence: DE)
  Receive Date: 20221021
  Receipt Date: 20221021
  Transmission Date: 20230113
  Serious: Yes (Other)
  Sender: FDA-Public Use
  Company Number: DE-ALKEM LABORATORIES LIMITED-DE-ALKEM-2022-10546

PATIENT
  Sex: Female
  Weight: 107 kg

DRUGS (8)
  1. FINGOLIMOD [Suspect]
     Active Substance: FINGOLIMOD
     Indication: Multiple sclerosis
     Dosage: 0.5 MILLIGRAM, QD (EVERY 1 DAY) (CAPSULE, HARD)
     Route: 048
     Dates: start: 20181108, end: 20181129
  2. FINGOLIMOD [Suspect]
     Active Substance: FINGOLIMOD
     Dosage: 0.5 MILLIGRAM, QD (EVERY 1 DAY) (CAPSULE, HARD)
     Route: 048
     Dates: start: 20181211, end: 20190515
  3. FINGOLIMOD [Suspect]
     Active Substance: FINGOLIMOD
     Dosage: 0.5 MILLIGRAM, QD (EVERY 1 DAY) (CAPSULE, HARD)
     Route: 048
     Dates: end: 20190527
  4. FINGOLIMOD [Suspect]
     Active Substance: FINGOLIMOD
     Dosage: 0.5 MILLIGRAM, QD (EVERY 1 DAY) (CAPSULE, HARD)
     Route: 048
  5. AMLODIPINE [Concomitant]
     Active Substance: AMLODIPINE BESYLATE
     Indication: Hypertension
     Dosage: 10 MILLIGRAM, QD (EVERY 1 DAY), TABLET (UNCOATED)
     Route: 048
     Dates: start: 20171211
  6. CHOLECALCIFEROL [Concomitant]
     Active Substance: CHOLECALCIFEROL
     Indication: Vitamin D deficiency
     Dosage: 200000 INTERNATIONAL UNIT (EVERY 1 WEEK)
     Route: 065
     Dates: start: 20170713
  7. AMILORIDE\BENDROFLUMETHIAZIDE [Concomitant]
     Active Substance: AMILORIDE\BENDROFLUMETHIAZIDE
     Indication: Hypertension
     Dosage: UNK (TABLET, UNCOATED) (EVERY 1 DAY)
     Route: 048
     Dates: start: 20171211
  8. VALSARTAN [Concomitant]
     Active Substance: VALSARTAN
     Indication: Hypertension
     Dosage: 160 MILLIGRAM, QD (EVERY 1 DAY) (TABLET, UNCOATED)
     Route: 048
     Dates: start: 20171211

REACTIONS (5)
  - Gingivitis [Recovered/Resolved]
  - Lymphocyte count decreased [Recovered/Resolved]
  - Lymphocyte count decreased [Recovered/Resolved]
  - Herpes zoster reactivation [Recovered/Resolved]
  - Lymphocyte count decreased [Recovered/Resolved]

NARRATIVE: CASE EVENT DATE: 20181128
